FAERS Safety Report 4490539-5 (Version None)
Quarter: 2004Q4

REPORT INFORMATION
  Report Type: 
  Country: None (occurrence: None)
  Receive Date: 20041028
  Receipt Date: 20041014
  Transmission Date: 20050328
  Serious: Yes (Hospitalization)
  Sender: FDA-Public Use
  Company Number: 2004AP05396

PATIENT
  Age: 58 Year
  Sex: Female

DRUGS (2)
  1. NOLVADEX [Suspect]
     Indication: BREAST CANCER
     Dosage: 20 MG DAILY PO
     Route: 048
     Dates: start: 20030811
  2. RADIATION THERAPY [Suspect]
     Indication: BREAST CANCER
     Dosage: 50 GY TO REMAINING BREAST
     Dates: start: 20030825, end: 20030930

REACTIONS (4)
  - BLOOD PRESSURE DECREASED [None]
  - CRYPTOGENIC ORGANIZING PNEUMONIA [None]
  - PNEUMONIA BACTERIAL [None]
  - RADIATION FIBROSIS - LUNG [None]
